FAERS Safety Report 5547060-2 (Version None)
Quarter: 2007Q4

REPORT INFORMATION
  Report Type: 
  Country: None (occurrence: None)
  Receive Date: 20071206
  Receipt Date: 20071122
  Transmission Date: 20080405
  Serious: Yes (Other)
  Sender: FDA-Public Use
  Company Number: 2007US002110

PATIENT
  Age: 61 Year
  Sex: Male

DRUGS (3)
  1. ADENOSCAN [Suspect]
     Indication: DRUG USE FOR UNKNOWN INDICATION
     Dosage: IV NOS
     Route: 042
  2. DOXAZOSIN MESYLATE [Concomitant]
  3. BENDROFLUMETHIAZIDE (BENDROFLUMETHIAZIDE) [Concomitant]

REACTIONS (2)
  - ATRIAL FLUTTER [None]
  - ATRIOVENTRICULAR BLOCK COMPLETE [None]
